FAERS Safety Report 24431179 (Version 2)
Quarter: 2025Q3

REPORT INFORMATION
  Report Type: Report from Study
  Country: US (occurrence: US)
  Receive Date: 20241014
  Receipt Date: 20250810
  Transmission Date: 20251021
  Serious: Yes (Other)
  Sender: ALEXION PHARMACEUTICALS
  Company Number: US-AstraZeneca-CH-00717200A

PATIENT
  Age: 84 Year
  Sex: Female
  Weight: 51.701 kg

DRUGS (1)
  1. CALQUENCE [Suspect]
     Active Substance: ACALABRUTINIB
     Indication: Chronic lymphocytic leukaemia
     Dosage: 100 MILLIGRAM, QD
     Dates: start: 20220507

REACTIONS (5)
  - Blood iron decreased [Unknown]
  - Haemoglobin decreased [Unknown]
  - Fatigue [Unknown]
  - Hair texture abnormal [Unknown]
  - Onychoclasis [Unknown]
